FAERS Safety Report 6936076-7 (Version None)
Quarter: 2010Q3

REPORT INFORMATION
  Report Type: 
  Country: None (occurrence: None)
  Receive Date: 20100819
  Receipt Date: 20100819
  Transmission Date: 20110219
  Serious: Yes (Other)
  Sender: FDA-Public Use
  Company Number: None

PATIENT
  Age: 63 Year
  Sex: Female
  Weight: 60 kg

DRUGS (15)
  1. SUMATRIPTAN SUCCINATE [Suspect]
     Indication: MIGRAINE
     Dosage: 50MG PRN PO
     Route: 048
     Dates: start: 20100813, end: 20100813
  2. HYDROMORPHONE [Concomitant]
  3. ONDANSETRON [Concomitant]
  4. LOAZEPAM [Concomitant]
  5. TRAZODONE HCL [Suspect]
  6. APAP TAB [Concomitant]
  7. DEXAMETHASONE [Concomitant]
  8. MAGOX [Concomitant]
  9. OXYCODONE [Concomitant]
  10. FENTANYL CITRATE [Concomitant]
  11. LEVETIRACITAM [Concomitant]
  12. OMEPRAZOLE [Concomitant]
  13. FLUOXETINE [Concomitant]
  14. MIRTAZAPINE [Concomitant]
  15. REGULAR INSULIN [Suspect]

REACTIONS (2)
  - AGITATION [None]
  - TENSION HEADACHE [None]
